FAERS Safety Report 7276213-0 (Version None)
Quarter: 2011Q1

REPORT INFORMATION
  Report Type: 
  Country: None (occurrence: None)
  Receive Date: 20110204
  Receipt Date: 20110127
  Transmission Date: 20110831
  Serious: Yes (Hospitalization)
  Sender: FDA-Public Use
  Company Number: PHHO2010US18820

PATIENT
  Sex: Female
  Weight: 54.422 kg

DRUGS (3)
  1. AZITHROMYCIN [Suspect]
     Indication: DIARRHOEA
     Dosage: UNK
     Dates: start: 20101209, end: 20101213
  2. CEFTRIAXONE [Suspect]
     Indication: DIARRHOEA
     Dosage: UNK
     Dates: start: 20101209, end: 20101213
  3. AFINITOR [Suspect]
     Indication: MALIGNANT NEOPLASM OF ISLETS OF LANGERHANS
     Dosage: 5 MG
     Route: 048
     Dates: start: 20090728, end: 20101220

REACTIONS (5)
  - WHITE BLOOD CELL COUNT INCREASED [None]
  - CONFUSIONAL STATE [None]
  - DIARRHOEA [None]
  - PNEUMONIA [None]
  - PYREXIA [None]
